FAERS Safety Report 12522200 (Version 2)
Quarter: 2016Q3

REPORT INFORMATION
  Report Type: Spontaneous
  Country: US (occurrence: US)
  Receive Date: 20160701
  Receipt Date: 20160810
  Transmission Date: 20161109
  Serious: Yes (Other)
  Sender: FDA-Public Use
  Company Number: US-ALLERGAN-1661485US

PATIENT
  Age: 81 Year
  Sex: Male
  Weight: 80.73 kg

DRUGS (1)
  1. REFRESH PLUS [Suspect]
     Active Substance: CARBOXYMETHYLCELLULOSE SODIUM
     Indication: PRODUCT USED FOR UNKNOWN INDICATION
     Dosage: UNK
     Route: 047

REACTIONS (2)
  - Corneal transplant [Unknown]
  - Superficial injury of eye [Recovered/Resolved]

NARRATIVE: CASE EVENT DATE: 2014
